FAERS Safety Report 10152816 (Version 1)
Quarter: 2014Q2

REPORT INFORMATION
  Report Type: Spontaneous
  Country: US (occurrence: US)
  Receive Date: 20140505
  Receipt Date: 20140505
  Transmission Date: 20141212
  Serious: Yes (Hospitalization)
  Sender: FDA-Public Use
  Company Number: US-TEVA-479066USA

PATIENT
  Age: 35 Year
  Sex: Male

DRUGS (4)
  1. AMLODIPINE [Suspect]
     Indication: INTENTIONAL OVERDOSE
     Dosage: 30 X 5MG TABLETS (150MG)
     Route: 048
  2. METOPROLOL [Suspect]
     Indication: INTENTIONAL OVERDOSE
     Dosage: 47 X 25MG TABLETS (1.18G)
     Route: 048
  3. VERAPAMIL [Suspect]
     Indication: INTENTIONAL OVERDOSE
     Dosage: 57 X 180MG TABLETS (10.26G)
     Route: 048
  4. INSULIN [Concomitant]
     Indication: TYPE 1 DIABETES MELLITUS
     Dosage: INSULIN INFUSION PUMP
     Route: 058

REACTIONS (4)
  - Cardiogenic shock [Recovered/Resolved]
  - Intentional overdose [Recovered/Resolved]
  - Suicide attempt [Recovered/Resolved]
  - Renal failure acute [Recovered/Resolved]
